FAERS Safety Report 8795149 (Version 3)
Quarter: 2015Q1

REPORT INFORMATION
  Report Type: Report from Study
  Country: US (occurrence: US)
  Receive Date: 20120918
  Receipt Date: 20150227
  Transmission Date: 20150721
  Serious: Yes (Death)
  Sender: FDA-Public Use
  Company Number: US-ROCHE-1097705

PATIENT
  Sex: Female
  Weight: 79.27 kg

DRUGS (3)
  1. AVASTIN [Suspect]
     Active Substance: BEVACIZUMAB
     Indication: GLIOBLASTOMA MULTIFORME
  2. AVASTIN [Suspect]
     Active Substance: BEVACIZUMAB
     Indication: BRAIN NEOPLASM MALIGNANT
  3. AVASTIN [Suspect]
     Active Substance: BEVACIZUMAB
     Indication: STATUS EPILEPTICUS
     Route: 065
     Dates: start: 20080912

REACTIONS (5)
  - Off label use [Unknown]
  - Death [Fatal]
  - General physical health deterioration [Unknown]
  - Asthenia [Unknown]
  - Memory impairment [Unknown]
